FAERS Safety Report 7331430-6 (Version None)
Quarter: 2011Q1

REPORT INFORMATION
  Report Type: 
  Country: None (occurrence: None)
  Receive Date: 20110304
  Receipt Date: 20110302
  Transmission Date: 20110831
  Serious: Yes (Other)
  Sender: FDA-Public Use
  Company Number: ES-PFIZER INC-2011045259

PATIENT
  Age: 71 Year
  Sex: Male

DRUGS (9)
  1. CHLORTHALIDONE [Suspect]
     Dosage: UNK
     Route: 048
     Dates: start: 20061110
  2. ACTRAPID INNOLET [Concomitant]
  3. MASDIL - SLOW RELEASE [Concomitant]
  4. MIXTARD HUMAN 70/30 [Concomitant]
  5. CARDYL [Suspect]
     Dosage: 10 MG, 1X/DAY
     Route: 048
     Dates: start: 20051024
  6. METFORMIN HCL [Suspect]
     Dosage: UNK
     Route: 048
     Dates: start: 20051024
  7. PENTOXIFILINA BELM [Suspect]
     Dosage: 400 MG, 3X/DAY
     Route: 048
     Dates: start: 20100427
  8. OMEPRAZOLE [Concomitant]
  9. PERMIXON [Concomitant]

REACTIONS (1)
  - DECREASED APPETITE [None]
